FAERS Safety Report 6376628-9 (Version None)
Quarter: 2009Q3

REPORT INFORMATION
  Report Type: 
  Country: None (occurrence: None)
  Receive Date: 20090925
  Receipt Date: 20090914
  Transmission Date: 20100115
  Serious: Yes (Hospitalization)
  Sender: FDA-Public Use
  Company Number: US-ROCHE-656797

PATIENT
  Sex: Male

DRUGS (3)
  1. MYCOPHENOLATE MOFETIL [Suspect]
     Route: 065
     Dates: start: 20070514
  2. NEORAL [Suspect]
     Indication: RENAL TRANSPLANT
     Route: 048
     Dates: start: 20080517
  3. PREDNISOLONE [Suspect]
     Indication: RENAL TRANSPLANT
     Route: 065
     Dates: start: 20070518

REACTIONS (1)
  - BLOOD CREATININE INCREASED [None]
